FAERS Safety Report 5505853-1 (Version None)
Quarter: 2007Q4

REPORT INFORMATION
  Report Type: 
  Country: None (occurrence: None)
  Receive Date: 20071102
  Receipt Date: 20071024
  Transmission Date: 20080405
  Serious: Yes (Death, Hospitalization)
  Sender: FDA-Public Use
  Company Number: GR-ABBOTT-07P-066-0418477-00

PATIENT
  Sex: Male
  Weight: 60.5 kg

DRUGS (7)
  1. ZEMPLAR [Suspect]
     Indication: HYPERPARATHYROIDISM SECONDARY
     Route: 042
     Dates: start: 20070314, end: 20070926
  2. DARBEPOETIN ALFA [Concomitant]
     Indication: ANAEMIA
     Route: 058
     Dates: start: 20051001, end: 20070926
  3. AMLOPEN [Concomitant]
     Indication: HYPERTENSION
     Route: 048
     Dates: start: 20061011, end: 20070908
  4. CETIRIZINE HYDROCHLORIDE [Concomitant]
     Indication: URAEMIC PRURITUS
     Route: 048
     Dates: start: 20061018, end: 20070720
  5. CARVEDILOL [Concomitant]
     Indication: CORONARY ARTERY DISEASE
     Route: 048
     Dates: start: 20060911, end: 20070908
  6. FOLIC ACID [Concomitant]
     Indication: VITAMIN SUPPLEMENTATION
     Route: 048
     Dates: start: 20070907, end: 20070926
  7. SEVELAMER [Concomitant]
     Indication: HYPERPHOSPHATAEMIA
     Route: 048
     Dates: start: 20041008, end: 20070926

REACTIONS (1)
  - SEPTIC SHOCK [None]
